FAERS Safety Report 5514846-X (Version None)
Quarter: 2007Q4

REPORT INFORMATION
  Report Type: 
  Country: None (occurrence: None)
  Receive Date: 20071113
  Receipt Date: 20071105
  Transmission Date: 20080405
  Serious: Yes (Death)
  Sender: FDA-Public Use
  Company Number: US-ELI_LILLY_AND_COMPANY-US200711000831

PATIENT
  Age: 60 Year
  Sex: Male

DRUGS (1)
  1. INSULIN, ANIMAL [Suspect]
     Route: 065

REACTIONS (2)
  - BRONCHOPNEUMONIA [None]
  - MYOCARDIAL INFARCTION [None]
